FAERS Safety Report 19835762 (Version 1)
Quarter: 2021Q3

REPORT INFORMATION
  Report Type: Spontaneous
  Country: US (occurrence: US)
  Receive Date: 20210916
  Receipt Date: 20210916
  Transmission Date: 20211014
  Serious: No
  Sender: FDA-Public Use
  Company Number: US-SA-2021SA303315

PATIENT
  Sex: Male

DRUGS (1)
  1. DUPIXENT [Suspect]
     Active Substance: DUPILUMAB
     Dosage: 150 MG/ML (600 MG/4 ML)
     Route: 058

REACTIONS (3)
  - Eczema [Recovering/Resolving]
  - Dry skin [Unknown]
  - Product use issue [Unknown]
